FAERS Safety Report 5730859-7 (Version None)
Quarter: 2008Q2

REPORT INFORMATION
  Report Type: 
  Country: None (occurrence: None)
  Receive Date: 20080507
  Receipt Date: 20080425
  Transmission Date: 20081010
  Serious: Yes (Death, Life-Threatening, Hospitalization)
  Sender: FDA-Public Use
  Company Number: FR-PFIZER INC-2008037112

PATIENT
  Sex: Female

DRUGS (16)
  1. TRIFLUCAN [Suspect]
     Route: 048
     Dates: start: 20070809, end: 20070813
  2. PREVISCAN [Suspect]
     Indication: PULMONARY EMBOLISM
     Dosage: DAILY DOSE:10MG
     Route: 048
     Dates: start: 20070808, end: 20070809
  3. PREVISCAN [Suspect]
     Dosage: DAILY DOSE:15MG
     Route: 048
     Dates: start: 20070810, end: 20070812
  4. LEVOTHYROXINE SODIUM [Suspect]
     Dosage: DAILY DOSE:50MCG
     Route: 048
  5. TAVANIC [Suspect]
     Dosage: DAILY DOSE:500MG
     Route: 048
     Dates: start: 20070802, end: 20070812
  6. INNOHEP [Suspect]
     Indication: PULMONARY EMBOLISM
     Dosage: DAILY DOSE:14000I.U.
     Route: 058
     Dates: start: 20070802, end: 20070805
  7. INNOHEP [Suspect]
     Dosage: DAILY DOSE:16000I.U.
     Route: 058
     Dates: start: 20070806, end: 20070813
  8. DEROXAT [Suspect]
     Dosage: DAILY DOSE:20MG
     Route: 048
     Dates: start: 20070809, end: 20070811
  9. CEFTRIAXONE [Suspect]
     Route: 042
     Dates: start: 20070802, end: 20070814
  10. ALDACTONE [Concomitant]
     Route: 048
  11. PRIMPERAN TAB [Concomitant]
  12. PERINDOPRIL ERBUMINE [Concomitant]
     Route: 048
  13. FORLAX [Concomitant]
     Route: 048
  14. LASILIX [Concomitant]
  15. CLONAZEPAM [Concomitant]
  16. INSULATARD [Concomitant]
     Route: 058

REACTIONS (3)
  - ANAEMIA [None]
  - HAEMATEMESIS [None]
  - RECTAL HAEMORRHAGE [None]
